FAERS Safety Report 5723405-5 (Version None)
Quarter: 2008Q2

REPORT INFORMATION
  Report Type: 
  Country: None (occurrence: None)
  Receive Date: 20080425
  Receipt Date: 20080411
  Transmission Date: 20081010
  Serious: Yes (Death, Other)
  Sender: FDA-Public Use
  Company Number: ENT 2008-0017

PATIENT
  Age: 62 Year
  Sex: Female

DRUGS (2)
  1. COMTAN [Suspect]
     Indication: PARKINSON'S DISEASE
     Dosage: 600 MG ORAL, 500 MG ORAL, 300 MG ORAL
     Route: 048
     Dates: start: 20070522
  2. COMTAN [Suspect]
     Indication: PARKINSON'S DISEASE
     Dosage: 600 MG ORAL, 500 MG ORAL, 300 MG ORAL
     Route: 048
     Dates: start: 20080121

REACTIONS (12)
  - ASPARTATE AMINOTRANSFERASE INCREASED [None]
  - BLOOD ALKALINE PHOSPHATASE INCREASED [None]
  - CARDIO-RESPIRATORY ARREST [None]
  - CONSTIPATION [None]
  - DEHYDRATION [None]
  - GAIT DISTURBANCE [None]
  - GASTROINTESTINAL PERFORATION [None]
  - LOSS OF CONSCIOUSNESS [None]
  - MALAISE [None]
  - PUPILLARY REFLEX IMPAIRED [None]
  - SEPSIS [None]
  - SHOCK [None]
